FAERS Safety Report 14028272 (Version 2)
Quarter: 2019Q1

REPORT INFORMATION
  Report Type: Report from Study
  Country: JP (occurrence: JP)
  Receive Date: 20170930
  Receipt Date: 20190223
  Transmission Date: 20190417
  Serious: Yes (Death, Hospitalization, Other)
  Sender: FDA-Public Use
  Company Number: JP-AMGEN-JPNCT2017148521

PATIENT
  Age: 86 Year
  Sex: Male

DRUGS (42)
  1. DARBEPOETIN ALFA [Suspect]
     Active Substance: DARBEPOETIN ALFA
     Dosage: 120 MUG, Q2WK
     Route: 058
     Dates: start: 20150220, end: 20150320
  2. FUROSEMIDE. [Concomitant]
     Active Substance: FUROSEMIDE
     Indication: CARDIAC FAILURE CHRONIC
     Dosage: 40 MG, UNK
     Route: 048
     Dates: start: 20150505, end: 20150721
  3. DETANTOL [Concomitant]
     Active Substance: BUNAZOSIN HYDROCHLORIDE
     Indication: GLAUCOMA
     Dosage: UNK
     Route: 047
  4. PREDNISOLONE. [Concomitant]
     Active Substance: PREDNISOLONE
     Indication: MYELODYSPLASTIC SYNDROME
     Dosage: 20 MG, UNK
     Route: 048
     Dates: start: 20150704, end: 20150729
  5. BLOPRESS [Concomitant]
     Active Substance: CANDESARTAN CILEXETIL
     Indication: HYPERTENSION
     Dosage: 8 MG, UNK
     Route: 048
     Dates: start: 20150505, end: 20150604
  6. PROPETO [Concomitant]
     Indication: GLAUCOMA
     Dosage: UNK
     Route: 061
     Dates: start: 20150915
  7. TRUSOPT [Concomitant]
     Active Substance: DORZOLAMIDE HYDROCHLORIDE
     Indication: GLAUCOMA
     Dosage: UNK
     Route: 047
  8. TAPROS [Concomitant]
     Indication: GLAUCOMA
     Dosage: UNK
     Route: 047
  9. GRAN [Concomitant]
     Active Substance: FILGRASTIM
     Indication: MYELODYSPLASTIC SYNDROME
     Dosage: UNK
     Route: 065
     Dates: start: 20150418, end: 20150419
  10. CALONAL [Concomitant]
     Active Substance: ACETAMINOPHEN
     Indication: BACK PAIN
     Dosage: 400 MG, AS NECESSARY
     Route: 048
     Dates: start: 20150508, end: 20150508
  11. LACTEC [Concomitant]
     Active Substance: CALCIUM CHLORIDE ANHYDROUS\POTASSIUM CHLORIDE\SODIUM CHLORIDE\SODIUM LACTATE
     Indication: CARDIAC FAILURE CHRONIC
     Dosage: UNK
     Route: 041
     Dates: end: 20150420
  12. URONASE [Concomitant]
     Active Substance: UROKINASE
     Dosage: UNK
     Route: 042
     Dates: end: 20150509
  13. ASPARA POTASSIUM [Concomitant]
     Active Substance: POTASSIUM ASPARTATE
     Indication: HYPOKALAEMIA
     Dosage: 900 MG, UNK
     Route: 048
     Dates: start: 20150430, end: 20150721
  14. TIMOPTOL [Concomitant]
     Active Substance: TIMOLOL
     Indication: CATARACT
     Dosage: UNK
     Route: 047
  15. ALLOPURINOL. [Concomitant]
     Active Substance: ALLOPURINOL
     Indication: HYPERURICAEMIA
     Dosage: 100 MG, UNK
     Route: 048
     Dates: end: 20150721
  16. SPIRONOLACTONE. [Concomitant]
     Active Substance: SPIRONOLACTONE
     Indication: CARDIAC FAILURE CHRONIC
     Dosage: 25 MG, UNK
     Route: 048
     Dates: start: 20150430, end: 20150721
  17. MYCOSYST [Concomitant]
     Active Substance: FLUCONAZOLE
     Dosage: 100 MG, UNK
     Route: 048
     Dates: start: 20150709, end: 20150721
  18. NEXIUM [Concomitant]
     Active Substance: ESOMEPRAZOLE MAGNESIUM
     Dosage: 20 MG, UNK
     Route: 048
     Dates: start: 20150725
  19. AMLODIN [Concomitant]
     Active Substance: AMLODIPINE BESYLATE
     Indication: HYPERTENSION
     Dosage: 5 MG, UNK
     Route: 048
     Dates: start: 20150505, end: 20150525
  20. ISOTONIC SODIUM CHLORIDE SOLUTION [Concomitant]
     Active Substance: SODIUM CHLORIDE
     Indication: MYELODYSPLASTIC SYNDROME
     Dosage: 100 ML, UNK
     Route: 065
     Dates: start: 20150406, end: 20150409
  21. CYLOCIDE [Concomitant]
     Active Substance: CYTARABINE
     Indication: MYELODYSPLASTIC SYNDROME
     Dosage: 32 MG, UNK
     Route: 065
     Dates: start: 20150406, end: 20150419
  22. DARBEPOETIN ALFA [Suspect]
     Active Substance: DARBEPOETIN ALFA
     Indication: MYELODYSPLASTIC SYNDROME
     Dosage: 120 MUG, Q2WK
     Route: 058
     Dates: start: 20150107, end: 20150121
  23. FUROSEMIDE. [Concomitant]
     Active Substance: FUROSEMIDE
     Indication: CONSTIPATION
     Dosage: 20 MG, UNK
     Route: 048
     Dates: start: 20150417, end: 20150420
  24. DECADRON [Concomitant]
     Active Substance: DEXAMETHASONE
     Indication: MYELODYSPLASTIC SYNDROME
     Dosage: 2 MG, UNK
     Route: 048
     Dates: start: 20150730
  25. MOHRUS [Concomitant]
     Active Substance: KETOPROFEN
     Indication: BACK PAIN
     Dosage: 1 DF, UNK
     Route: 061
     Dates: start: 20150814
  26. UNISIA [Concomitant]
     Active Substance: AMLODIPINE BESYLATE\CANDESARTAN CILEXETIL
     Indication: BENIGN PROSTATIC HYPERPLASIA
     Dosage: 1 DF, UNK
     Route: 048
     Dates: end: 20150504
  27. BAYASPIRIN [Concomitant]
     Active Substance: ASPIRIN
     Indication: CARDIAC FAILURE CHRONIC
     Dosage: 100 MG, UNK
     Route: 048
     Dates: end: 20150721
  28. ACLACINON [Concomitant]
     Active Substance: ACLARUBICIN HYDROCHLORIDE
     Indication: MYELODYSPLASTIC SYNDROME
     Dosage: 22 MG, UNK
     Route: 065
     Dates: start: 20150406, end: 20150409
  29. AMLODIPINE [Concomitant]
     Active Substance: AMLODIPINE BESYLATE
     Indication: HYPERTENSION
     Dosage: UNK
     Route: 048
  30. DARBEPOETIN ALFA [Suspect]
     Active Substance: DARBEPOETIN ALFA
     Indication: ANAEMIA
     Dosage: 240 MUG, UNK
     Route: 058
     Dates: start: 20150206, end: 20150206
  31. ARTIST [Concomitant]
     Active Substance: CARVEDILOL
     Indication: CARDIAC FAILURE CHRONIC
     Dosage: 10 MG, UNK
     Route: 048
  32. MYSLEE [Concomitant]
     Active Substance: ZOLPIDEM TARTRATE
     Indication: INSOMNIA
     Dosage: 5 MG, AS NECESSARY
     Route: 048
  33. FUROSEMIDE. [Concomitant]
     Active Substance: FUROSEMIDE
     Dosage: UNK
     Route: 065
     Dates: end: 20150504
  34. DISTILLED WATER                    /01224701/ [Concomitant]
     Indication: CARDIAC FAILURE CHRONIC
     Dosage: UNK
     Route: 065
  35. KN NO.3 [Concomitant]
     Active Substance: DEXTROSE\POTASSIUM CHLORIDE\SODIUM CHLORIDE\SODIUM LACTATE
     Indication: CARDIAC FAILURE CHRONIC
     Dosage: UNK
     Route: 041
     Dates: end: 20150423
  36. MAGMITT [Concomitant]
     Active Substance: MAGNESIUM OXIDE
     Indication: CONSTIPATION
     Dosage: UNK
     Route: 048
  37. ITRIZOLE [Concomitant]
     Active Substance: ITRACONAZOLE
     Dosage: 20 ML, UNK
     Route: 048
     Dates: start: 20150420
  38. TAZIN [Concomitant]
     Active Substance: CARBAZOCHROME SODIUM SULFONATE
     Dosage: 90 MG, UNK
     Route: 048
     Dates: start: 20150709
  39. ALOXI [Concomitant]
     Active Substance: PALONOSETRON HYDROCHLORIDE
     Dosage: UNK
     Route: 041
     Dates: end: 20150406
  40. HANP [Concomitant]
     Active Substance: CARPERITIDE
     Indication: CARDIAC FAILURE CHRONIC
     Dosage: UNK
     Route: 042
     Dates: end: 20150428
  41. GLUCOSE [Concomitant]
     Active Substance: DEXTROSE
     Indication: CARDIAC FAILURE CHRONIC
     Dosage: UNK
     Route: 065
     Dates: end: 20150428
  42. SOLBASE [Concomitant]
     Dosage: UNK
     Route: 061
     Dates: start: 20150817

REACTIONS (11)
  - Tachycardia paroxysmal [Recovered/Resolved]
  - Sepsis [Recovering/Resolving]
  - Dry skin [Not Recovered/Not Resolved]
  - Decreased appetite [Not Recovered/Not Resolved]
  - Haemorrhagic diathesis [Recovered/Resolved]
  - Eosinophil count increased [Recovered/Resolved]
  - Septic shock [Recovered/Resolved]
  - Sepsis [Recovered/Resolved]
  - Sepsis [Recovering/Resolving]
  - Cellulitis [Fatal]
  - Cellulitis [Recovered/Resolved]

NARRATIVE: CASE EVENT DATE: 20150401
